FAERS Safety Report 10770666 (Version 2)
Quarter: 2015Q1

REPORT INFORMATION
  Report Type: Spontaneous
  Country: GR (occurrence: GR)
  Receive Date: 20150206
  Receipt Date: 20150220
  Transmission Date: 20150721
  Serious: Yes (Hospitalization, Other)
  Sender: FDA-Public Use
  Company Number: GR-INCYTE CORPORATION-2014IN003876

PATIENT
  Age: 76 Year
  Sex: Male

DRUGS (3)
  1. JAKAFI [Suspect]
     Active Substance: RUXOLITINIB
     Dosage: 5 MG, BID (1 X 5 MG TABLET, TWICE DAILY)
     Route: 048
     Dates: start: 20141118, end: 20141204
  2. JAKAFI [Suspect]
     Active Substance: RUXOLITINIB
     Indication: MYELOFIBROSIS
     Dosage: 10 MG, BID (2 X 5 MG TABLETS, TWICE DAILY)
     Route: 048
     Dates: start: 20140317, end: 201406
  3. JAKAFI [Suspect]
     Active Substance: RUXOLITINIB
     Dosage: 10 MG, BID (2 X 5 MG TABLETS, TWICE DAILY)
     Route: 048
     Dates: end: 20141118

REACTIONS (6)
  - Myelofibrosis [Unknown]
  - General physical health deterioration [Unknown]
  - Coronary artery disease [Unknown]
  - Contusion [Unknown]
  - Platelet count decreased [Unknown]
  - Anaemia [Unknown]
